FAERS Safety Report 7795361-X (Version None)
Quarter: 2011Q3

REPORT INFORMATION
  Report Type: 
  Country: None (occurrence: None)
  Receive Date: 20110930
  Receipt Date: 20110908
  Transmission Date: 20111222
  Serious: Yes (Hospitalization)
  Sender: FDA-Public Use
  Company Number: JPI-P-016996

PATIENT
  Age: 76 Year
  Sex: Female

DRUGS (3)
  1. XYREM [Suspect]
     Indication: SOMNOLENCE
     Dosage: 4.5 GM (2.25 GM, 2 IN 1 D), ORAL, TITRATING DOSE, ORAL, 9 GM (4.5 GM, 2 IN 1 D, ORAL
     Route: 048
     Dates: start: 20110101
  2. XYREM [Suspect]
     Indication: SOMNOLENCE
     Dosage: 4.5 GM (2.25 GM, 2 IN 1 D), ORAL, TITRATING DOSE, ORAL, 9 GM (4.5 GM, 2 IN 1 D, ORAL
     Route: 048
     Dates: start: 20110101, end: 20110101
  3. XYREM [Suspect]
     Indication: SOMNOLENCE
     Dosage: 4.5 GM (2.25 GM, 2 IN 1 D), ORAL, TITRATING DOSE, ORAL, 9 GM (4.5 GM, 2 IN 1 D, ORAL
     Route: 048
     Dates: start: 20110711, end: 20110101

REACTIONS (1)
  - LOWER LIMB FRACTURE [None]
